FAERS Safety Report 23595379 (Version 1)
Quarter: 2024Q1

REPORT INFORMATION
  Report Type: Spontaneous
  Country: US (occurrence: US)
  Receive Date: 20240305
  Receipt Date: 20240305
  Transmission Date: 20240409
  Serious: No
  Sender: FDA-Public Use
  Company Number: US-BoehringerIngelheim-2024-BI-011829

PATIENT
  Age: 67 Year
  Sex: Male
  Weight: 77 kg

DRUGS (7)
  1. JARDIANCE [Suspect]
     Active Substance: EMPAGLIFLOZIN
     Indication: Product used for unknown indication
     Dates: start: 2023
  2. EPRINOMECTIN\PRAZIQUANTEL [Suspect]
     Active Substance: EPRINOMECTIN\PRAZIQUANTEL
     Indication: Product used for unknown indication
     Dosage: TOPICAL/CUATNEOUS
     Dates: start: 20240214
  3. CLOPIDOGREL [Concomitant]
     Active Substance: CLOPIDOGREL BISULFATE
     Indication: Product used for unknown indication
     Dosage: TOPICAL/CUATNEOUS
     Dates: start: 2023
  4. VITAMIN D2 [Concomitant]
     Active Substance: ERGOCALCIFEROL
     Dosage: TOPICAL/CUATNEOUS
     Dates: start: 2023
  5. VITAMIN D3 [Concomitant]
     Active Substance: CHOLECALCIFEROL
     Dosage: TOPICAL/CUATNEOUS
     Dates: start: 2023
  6. MAGNESIUM CITRATE [Concomitant]
     Active Substance: MAGNESIUM CITRATE
     Dosage: TOPICAL/CUATNEOUS
     Dates: start: 2023
  7. ASPIRIN [Concomitant]
     Active Substance: ASPIRIN
     Dosage: TOPICAL/CUATNEOUS
     Dates: start: 2023

REACTIONS (2)
  - Accidental exposure to product [Recovered/Resolved]
  - Hypoaesthesia oral [Recovered/Resolved]

NARRATIVE: CASE EVENT DATE: 20240214
